FAERS Safety Report 6876462-7 (Version None)
Quarter: 2010Q3

REPORT INFORMATION
  Report Type: 
  Country: None (occurrence: None)
  Receive Date: 20100727
  Receipt Date: 20100712
  Transmission Date: 20110219
  Serious: Yes (Hospitalization)
  Sender: FDA-Public Use
  Company Number: ES-PFIZER INC-2010091920

PATIENT
  Age: 77 Year
  Sex: Female

DRUGS (8)
  1. ALDACTONE [Suspect]
     Dosage: 12.5 MG, 1X/DAY
     Route: 048
     Dates: start: 20100101, end: 20100329
  2. AMLODIPINE,OLMESARTAN MEDOXOMIL [Interacting]
     Dosage: 40/10 MG, 1X/DAY
     Route: 048
     Dates: start: 20100101, end: 20100329
  3. OMEPRAZOLE [Concomitant]
     Dosage: 20 MG, 1X/DAY
     Route: 048
  4. DEXNON [Concomitant]
     Indication: HYPOTHYROIDISM
     Dosage: 150 MCG, 1X/DAY
     Route: 048
  5. MIXTARD 30/70 ^NOVO NORDISK^ [Concomitant]
     Indication: TYPE 2 DIABETES MELLITUS
     Route: 058
  6. LORAZEPAM [Concomitant]
     Dosage: 1 MG, UNK
     Route: 048
  7. SEGURIL [Concomitant]
     Dosage: 40 MG, 1X/DAY
     Route: 048
  8. SINTROM [Concomitant]
     Indication: ATRIAL FIBRILLATION
     Route: 048

REACTIONS (3)
  - BLOOD CREATININE INCREASED [None]
  - DRUG INTERACTION [None]
  - HYPERKALAEMIA [None]
